FAERS Safety Report 9229387 (Version 1)
Quarter: 2013Q2

REPORT INFORMATION
  Report Type: Spontaneous
  Country: US (occurrence: US)
  Receive Date: 20130412
  Receipt Date: 20130412
  Transmission Date: 20140414
  Serious: No
  Sender: FDA-Public Use
  Company Number: US-ASTELLAS-2013US002104

PATIENT
  Sex: Female

DRUGS (2)
  1. PROGRAF [Suspect]
     Indication: PANCREAS ISLET CELL TRANSPLANT
     Dosage: 3.5 MG, UID/QD
     Route: 048
     Dates: start: 20081104
  2. PROGRAF [Suspect]
     Dosage: 3.5 MG, UID/QD  (1.5 MG IN AM A AND 2 MG IN PM)

REACTIONS (1)
  - Off label use [Not Recovered/Not Resolved]
